FAERS Safety Report 5928989-X (Version None)
Quarter: 2008Q4

REPORT INFORMATION
  Report Type: 
  Country: None (occurrence: None)
  Receive Date: 20081024
  Receipt Date: 20081015
  Transmission Date: 20090506
  Serious: Yes (Hospitalization)
  Sender: FDA-Public Use
  Company Number: JP-JNJFOC-20081004630

PATIENT
  Sex: Female

DRUGS (7)
  1. ORTHO-NOVUM 1/35-21 [Suspect]
     Indication: DYSMENORRHOEA
     Route: 048
  2. ORTHO-NOVUM 1/35-21 [Suspect]
     Indication: CONTRACEPTION
     Route: 048
  3. LOXOPROFEN [Concomitant]
     Route: 065
  4. TEPRENONE [Concomitant]
     Route: 065
  5. HEMONASE [Concomitant]
     Route: 065
  6. MAGNESIA OXIDE [Concomitant]
     Route: 065
  7. ALL OTHER THERAPEUTIC DRUGS [Concomitant]
     Route: 065

REACTIONS (4)
  - INAPPROPRIATE SCHEDULE OF DRUG ADMINISTRATION [None]
  - METRORRHAGIA [None]
  - OFF LABEL USE [None]
  - SURGERY [None]
